FAERS Safety Report 9459229 (Version 1)
Quarter: 2013Q3

REPORT INFORMATION
  Report Type: Report from Study
  Country: JP (occurrence: JP)
  Receive Date: 20130814
  Receipt Date: 20130814
  Transmission Date: 20140515
  Serious: Yes (Other)
  Sender: FDA-Public Use
  Company Number: JP-B.I. PHARMACEUTICALS,INC./RIDGEFIELD-2013-BI-21796GD

PATIENT
  Sex: 0

DRUGS (3)
  1. PRADAXA [Suspect]
     Indication: ATRIAL FIBRILLATION
     Dosage: 220 MG
     Route: 048
  2. HEPARIN [Suspect]
     Dosage: DOSES TO MAINTAIN ACTIVATED CLOTTING TIME (ACT) AT 300 TO 350 SECONDS DURING THE ABLATION PROCEDURE
  3. HEPARIN [Suspect]
     Dosage: 10000 U

REACTIONS (1)
  - Cerebral infarction [Unknown]
